FAERS Safety Report 6607089-X (Version None)
Quarter: 2010Q1

REPORT INFORMATION
  Report Type: 
  Country: None (occurrence: None)
  Receive Date: 20100219
  Receipt Date: 20100204
  Transmission Date: 20100710
  Serious: Yes (Other)
  Sender: FDA-Public Use
  Company Number: DSA_42548_2010

PATIENT
  Sex: Male

DRUGS (7)
  1. XENAZINE [Suspect]
     Indication: TOURETTE'S DISORDER
     Dosage: 12.5 MG QD, ORAL
     Route: 048
     Dates: start: 20100115, end: 20100121
  2. TOPAMAX [Concomitant]
  3. ZOLOFT [Concomitant]
  4. CLONIDINE [Concomitant]
  5. ADVAIR DISKUS 100/50 [Concomitant]
  6. SINGULAIR [Concomitant]
  7. XYZAL [Concomitant]

REACTIONS (4)
  - AGGRESSION [None]
  - INTENTIONAL SELF-INJURY [None]
  - SCRATCH [None]
  - SKIN HAEMORRHAGE [None]
